FAERS Safety Report 9724976 (Version 1)
Quarter: 2013Q4

REPORT INFORMATION
  Report Type: Other
  Country: BG (occurrence: BG)
  Receive Date: 20131202
  Receipt Date: 20131202
  Transmission Date: 20140711
  Serious: Yes (Hospitalization)
  Sender: FDA-Public Use
  Company Number: BG-SANTEN INC.-INC-13-000303

PATIENT
  Sex: Female
  Weight: 5.3 kg

DRUGS (3)
  1. TIMOLOL 0.5% [Suspect]
     Indication: DEVELOPMENTAL GLAUCOMA
     Route: 061
  2. BRIMONIDINE [Suspect]
     Indication: DEVELOPMENTAL GLAUCOMA
     Route: 061
  3. BRINZOLAMIDE [Suspect]
     Indication: DEVELOPMENTAL GLAUCOMA
     Route: 061

REACTIONS (3)
  - Cardiogenic shock [Recovered/Resolved]
  - Depressed level of consciousness [Recovered/Resolved]
  - Bronchial obstruction [Recovered/Resolved]
